FAERS Safety Report 7153590-2 (Version None)
Quarter: 2010Q4

REPORT INFORMATION
  Report Type: 
  Country: None (occurrence: None)
  Receive Date: 20101130
  Receipt Date: 20101122
  Transmission Date: 20110411
  Serious: Yes (Other)
  Sender: FDA-Public Use
  Company Number: 2010SP061481

PATIENT
  Age: 68 Year
  Sex: Female
  Weight: 60 kg

DRUGS (2)
  1. ORMIGREIN (ORMIGREIN /01755201/) [Suspect]
     Indication: MIGRAINE
     Dosage: PO
     Route: 048
     Dates: start: 19900101, end: 20101110
  2. NAPRIX /00885601/ [Concomitant]

REACTIONS (1)
  - DRUG DEPENDENCE [None]
